FAERS Safety Report 25461939 (Version 1)
Quarter: 2025Q2

REPORT INFORMATION
  Report Type: Spontaneous
  Country: US (occurrence: US)
  Receive Date: 20250620
  Receipt Date: 20250620
  Transmission Date: 20250717
  Serious: No
  Sender: BAUSCH AND LOMB
  Company Number: US-BAUSCHBL-2025BNL010886

PATIENT
  Age: 39 Year
  Sex: Female
  Weight: 120 kg

DRUGS (1)
  1. ERYTHROMYCIN [Suspect]
     Active Substance: ERYTHROMYCIN
     Indication: Postoperative care
     Route: 065
     Dates: start: 202505

REACTIONS (2)
  - Limb injury [Unknown]
  - Product package associated injury [Unknown]

NARRATIVE: CASE EVENT DATE: 20250501
